FAERS Safety Report 4701249-0 (Version None)
Quarter: 2005Q2

REPORT INFORMATION
  Report Type: 
  Country: None (occurrence: None)
  Receive Date: 20050628
  Receipt Date: 20050620
  Transmission Date: 20051028
  Serious: Yes (Death, Life-Threatening)
  Sender: FDA-Public Use
  Company Number: US-AMGEN-US139646

PATIENT
  Sex: Male

DRUGS (8)
  1. ENBREL [Suspect]
     Indication: RHEUMATOID ARTHRITIS
     Dates: start: 19990101
  2. INFLIXIMAB [Suspect]
     Route: 042
     Dates: start: 20030527, end: 20041014
  3. METHOTREXATE [Concomitant]
  4. IPRATROPIUM BROMIDE [Concomitant]
  5. ALBUTEROL [Concomitant]
  6. ACETYLSALICYLIC ACID SRT [Concomitant]
  7. LISINOPRIL [Concomitant]
  8. ADVAIR [Concomitant]

REACTIONS (2)
  - LUNG ADENOCARCINOMA METASTATIC [None]
  - METASTASES TO BONE [None]
